FAERS Safety Report 14619948 (Version 1)
Quarter: 2018Q1

REPORT INFORMATION
  Report Type: Spontaneous
  Country: US (occurrence: US)
  Receive Date: 20180309
  Receipt Date: 20180309
  Transmission Date: 20180509
  Serious: No
  Sender: FDA-Public Use
  Company Number: US-BAYER-2018-045310

PATIENT
  Age: 32 Year
  Sex: Female

DRUGS (1)
  1. GADAVIST [Suspect]
     Active Substance: GADOBUTROL
     Dosage: UNK, ONCE
     Route: 042
     Dates: start: 20180307, end: 20180307

REACTIONS (2)
  - Urticaria [Recovering/Resolving]
  - Skin warm [Recovering/Resolving]

NARRATIVE: CASE EVENT DATE: 20180307
